FAERS Safety Report 12795138 (Version 1)
Quarter: 2016Q3

REPORT INFORMATION
  Report Type: Spontaneous
  Country: GB (occurrence: GB)
  Receive Date: 20160929
  Receipt Date: 20160929
  Transmission Date: 20161109
  Serious: Yes (Life-Threatening, Hospitalization)
  Sender: FDA-Public Use
  Company Number: GB-PFIZER INC-2016449330

PATIENT
  Age: 89 Year
  Sex: Female

DRUGS (12)
  1. LANSOPRAZOLE. [Concomitant]
     Active Substance: LANSOPRAZOLE
     Dosage: UNK
  2. CANDESARTAN [Concomitant]
     Active Substance: CANDESARTAN
     Dosage: UNK
  3. SODIUM CHLORIDE. [Concomitant]
     Active Substance: SODIUM CHLORIDE
     Dosage: UNK
  4. GLYCERYL TRINITRATE [Concomitant]
     Active Substance: NITROGLYCERIN
     Dosage: UNK
  5. FUROSEMIDE. [Concomitant]
     Active Substance: FUROSEMIDE
     Dosage: UNK
  6. ZEROBASE [Concomitant]
     Dosage: UNK
  7. METOCLOPRAMIDE. [Concomitant]
     Active Substance: METOCLOPRAMIDE
     Dosage: UNK
  8. XARELTO [Concomitant]
     Active Substance: RIVAROXABAN
     Dosage: UNK
  9. BISOPROLOL [Concomitant]
     Active Substance: BISOPROLOL
     Dosage: UNK
  10. QUININE SULPHATE [Concomitant]
     Active Substance: QUININE SULFATE
     Dosage: UNK
  11. AMIODARONE HCL [Suspect]
     Active Substance: AMIODARONE HYDROCHLORIDE
     Indication: ATRIAL FIBRILLATION
     Dosage: 200 MG, 3X/DAY
     Route: 048
     Dates: start: 20160905, end: 20160909
  12. CETRABEN [Concomitant]
     Active Substance: PARAFFIN
     Dosage: UNK

REACTIONS (10)
  - Gamma-glutamyltransferase increased [Unknown]
  - Aspartate aminotransferase increased [Unknown]
  - Lethargy [Unknown]
  - Alanine aminotransferase increased [Unknown]
  - Pneumonia [Unknown]
  - Malaise [Unknown]
  - Asthenia [Unknown]
  - Decreased appetite [Unknown]
  - Cough [Not Recovered/Not Resolved]
  - Dyspnoea [Not Recovered/Not Resolved]

NARRATIVE: CASE EVENT DATE: 20160905
